FAERS Safety Report 8086378-9 (Version None)
Quarter: 2012Q1

REPORT INFORMATION
  Report Type: 
  Country: None (occurrence: None)
  Receive Date: 20120128
  Receipt Date: 20110510
  Transmission Date: 20120608
  Serious: No
  Sender: FDA-Public Use
  Company Number: US-ABBOTT-11P-163-0724661-00

PATIENT
  Age: 43 Year
  Sex: Female

DRUGS (4)
  1. METFFORMIN HYDROCHLORIDE [Concomitant]
     Indication: DIABETES PROPHYLAXIS
  2. PRILOSEC [Concomitant]
     Indication: GASTROOESOPHAGEAL REFLUX DISEASE
  3. QUINAPRIL [Concomitant]
     Indication: HYPERTENSION
  4. HUMIRA [Suspect]
     Indication: PSORIASIS
     Dates: start: 20070801

REACTIONS (3)
  - EAR INFECTION [None]
  - PSORIASIS [None]
  - HYPERSENSITIVITY [None]
